FAERS Safety Report 6678243-6 (Version None)
Quarter: 2010Q2

REPORT INFORMATION
  Report Type: 
  Country: None (occurrence: None)
  Receive Date: 20100407
  Receipt Date: 20100407
  Transmission Date: 20101027
  Serious: Yes (Hospitalization)
  Sender: FDA-Public Use
  Company Number: None

PATIENT
  Age: 35 Year
  Sex: Male
  Weight: 72.5755 kg

DRUGS (6)
  1. OXYCONTIN [Suspect]
     Indication: ANXIETY
     Dosage: 20 MG. DAILY PO
     Route: 048
     Dates: start: 20100205, end: 20100222
  2. OXYCONTIN [Suspect]
     Indication: DEPRESSION
     Dosage: 20 MG. DAILY PO
     Route: 048
     Dates: start: 20100205, end: 20100222
  3. OXYCONTIN [Suspect]
     Indication: OBSESSIVE THOUGHTS
     Dosage: 20 MG. DAILY PO
     Route: 048
     Dates: start: 20100205, end: 20100222
  4. OXYCONTIN [Suspect]
     Indication: ANXIETY
     Dosage: 40 MG X 1 DAILY PO
     Route: 048
     Dates: start: 20100205, end: 20100222
  5. OXYCONTIN [Suspect]
     Indication: DEPRESSION
     Dosage: 40 MG X 1 DAILY PO
     Route: 048
     Dates: start: 20100205, end: 20100222
  6. OXYCONTIN [Suspect]
     Indication: OBSESSIVE THOUGHTS
     Dosage: 40 MG X 1 DAILY PO
     Route: 048
     Dates: start: 20100205, end: 20100222

REACTIONS (5)
  - BEDRIDDEN [None]
  - DELIRIUM [None]
  - LETHARGY [None]
  - ORGAN FAILURE [None]
  - PRODUCT QUALITY ISSUE [None]
